FAERS Safety Report 16946334 (Version 1)
Quarter: 2019Q4

REPORT INFORMATION
  Report Type: Spontaneous
  Country: HR (occurrence: HR)
  Receive Date: 20191022
  Receipt Date: 20191022
  Transmission Date: 20200122
  Serious: Yes (Other)
  Sender: FDA-Public Use
  Company Number: NVSC2019HR010084

PATIENT

DRUGS (2)
  1. MYCOPHENOLIC ACID. [Suspect]
     Active Substance: MYCOPHENOLIC ACID
     Indication: RENAL TRANSPLANT
     Dosage: UNK
     Route: 065
  2. MYCOPHENOLIC ACID. [Suspect]
     Active Substance: MYCOPHENOLIC ACID
     Indication: IMMUNOSUPPRESSANT DRUG THERAPY

REACTIONS (4)
  - Transplant rejection [Unknown]
  - Proteinuria [Unknown]
  - Focal segmental glomerulosclerosis [Unknown]
  - Transplant failure [Unknown]
